FAERS Safety Report 6878743-X (Version None)
Quarter: 2010Q3

REPORT INFORMATION
  Report Type: 
  Country: None (occurrence: None)
  Receive Date: 20100728
  Receipt Date: 20100719
  Transmission Date: 20110219
  Serious: Yes (Other)
  Sender: FDA-Public Use
  Company Number: BR-SANOFI-AVENTIS-2010SA042688

PATIENT
  Sex: Male
  Weight: 54 kg

DRUGS (3)
  1. LANTUS [Suspect]
     Indication: TYPE 1 DIABETES MELLITUS
     Route: 058
     Dates: start: 20060101
  2. AUTOPEN 24 [Suspect]
  3. NOVORAPID [Concomitant]

REACTIONS (1)
  - BLINDNESS [None]
